FAERS Safety Report 6746815-6 (Version None)
Quarter: 2010Q2

REPORT INFORMATION
  Report Type: 
  Country: None (occurrence: None)
  Receive Date: 20100528
  Receipt Date: 20100105
  Transmission Date: 20101027
  Serious: No
  Sender: FDA-Public Use
  Company Number: A0837740A

PATIENT
  Age: 76 Year
  Sex: Male

DRUGS (2)
  1. VENTOLIN [Suspect]
     Indication: PNEUMONIA
     Dosage: 2PUFF FOUR TIMES PER DAY
     Route: 055
     Dates: start: 20091220, end: 20100105
  2. FLOMAX [Concomitant]

REACTIONS (3)
  - APHONIA [None]
  - DYSPHONIA [None]
  - URINE FLOW DECREASED [None]
